FAERS Safety Report 5345374-2 (Version None)
Quarter: 2007Q2

REPORT INFORMATION
  Report Type: 
  Country: None (occurrence: None)
  Receive Date: 20070605
  Receipt Date: 20070525
  Transmission Date: 20071010
  Serious: Yes (Hospitalization)
  Sender: FDA-Public Use
  Company Number: PHEH2007US04968

PATIENT
  Age: 66 Year
  Sex: Female

DRUGS (6)
  1. ZANAFLEX [Concomitant]
  2. ULTRAM [Concomitant]
  3. METFORMIN HCL [Concomitant]
  4. LYRICA [Concomitant]
  5. BACLOFEN [Concomitant]
  6. ZELNORM [Suspect]
     Indication: CONSTIPATION
     Dosage: 6 MG, BID
     Route: 048
     Dates: start: 20020101, end: 20070410

REACTIONS (5)
  - CORONARY ARTERY OCCLUSION [None]
  - DEPRESSED LEVEL OF CONSCIOUSNESS [None]
  - DRUG INEFFECTIVE [None]
  - MEMORY IMPAIRMENT [None]
  - PALPITATIONS [None]
